FAERS Safety Report 19900301 (Version 1)
Quarter: 2021Q3

REPORT INFORMATION
  Report Type: Spontaneous
  Country: US (occurrence: US)
  Receive Date: 20210928
  Receipt Date: 20210928
  Transmission Date: 20211014
  Serious: Yes (Other)
  Sender: FDA-Public Use
  Company Number: None

PATIENT
  Sex: Female

DRUGS (5)
  1. SODIUM CHLORIDE. [Suspect]
     Active Substance: SODIUM CHLORIDE
  2. TORADOL [Suspect]
     Active Substance: KETOROLAC TROMETHAMINE
  3. BENADRYL [Suspect]
     Active Substance: DIPHENHYDRAMINE HYDROCHLORIDE
  4. NOVOCAINE [Suspect]
     Active Substance: PROCAINE
  5. REGLAN [Suspect]
     Active Substance: METOCLOPRAMIDE HYDROCHLORIDE

REACTIONS (5)
  - Pain [None]
  - Dizziness [None]
  - Abnormal behaviour [None]
  - Sleep disorder [None]
  - Migraine [None]

NARRATIVE: CASE EVENT DATE: 20210928
